FAERS Safety Report 5632194-4 (Version None)
Quarter: 2008Q1

REPORT INFORMATION
  Report Type: 
  Country: None (occurrence: None)
  Receive Date: 20080220
  Receipt Date: 20080213
  Transmission Date: 20080703
  Serious: Yes (Hospitalization)
  Sender: FDA-Public Use
  Company Number: JP-ASTRAZENECA-2008AP01056

PATIENT
  Age: 72 Year
  Sex: Female
  Weight: 45 kg

DRUGS (8)
  1. IRESSA [Suspect]
     Indication: LUNG NEOPLASM MALIGNANT
     Route: 048
     Dates: start: 20080115, end: 20080118
  2. AMOBAN [Concomitant]
     Indication: INSOMNIA
     Route: 048
     Dates: start: 20071123
  3. ZYPREXA [Concomitant]
     Indication: NAUSEA
     Route: 048
     Dates: start: 20080107
  4. NAUZELIN [Concomitant]
     Indication: NAUSEA
     Dosage: UNKNOWN DIVIDED DOSE FREQUENCY
     Route: 054
     Dates: start: 20071203
  5. NOVAMIN [Concomitant]
     Indication: NAUSEA
     Route: 048
     Dates: start: 20071123
  6. OXYCONTIN [Concomitant]
     Indication: CANCER PAIN
     Route: 048
     Dates: start: 20071123
  7. LOXONIN [Concomitant]
     Dosage: DOSE UNKNOWN
     Route: 048
  8. MUCOSTA [Concomitant]
     Dosage: DOSE UNKNOWN
     Route: 048

REACTIONS (3)
  - DEPRESSED LEVEL OF CONSCIOUSNESS [None]
  - DIZZINESS [None]
  - RASH [None]
